FAERS Safety Report 5324446-2 (Version None)
Quarter: 2007Q2

REPORT INFORMATION
  Report Type: 
  Country: None (occurrence: None)
  Receive Date: 20070508
  Receipt Date: 20070423
  Transmission Date: 20071010
  Serious: Yes (Disabling)
  Sender: FDA-Public Use
  Company Number: 2007EU000878

PATIENT
  Age: 53 Year
  Sex: Female

DRUGS (3)
  1. VESICARE [Suspect]
     Indication: HYPERTONIC BLADDER
     Dosage: 5 MG, ORAL
     Route: 048
     Dates: start: 20070312, end: 20070320
  2. ADCAL-DE (COLECALCIFEROL) [Concomitant]
  3. ALENDRONATE SODIUM [Concomitant]

REACTIONS (1)
  - MUSCULAR WEAKNESS [None]
